FAERS Safety Report 7478072-X (Version None)
Quarter: 2011Q2

REPORT INFORMATION
  Report Type: 
  Country: None (occurrence: None)
  Receive Date: 20110513
  Receipt Date: 20110426
  Transmission Date: 20111010
  Serious: Yes (Hospitalization, Other)
  Sender: FDA-Public Use
  Company Number: US-BAYER-2011-014124

PATIENT
  Age: 56 Year
  Sex: Male
  Weight: 78.458 kg

DRUGS (19)
  1. ALDACTONE [Concomitant]
     Dosage: 25 MG, BID
     Route: 048
  2. SYNTHROID [Concomitant]
     Dosage: 25 ?G, QD
     Route: 048
  3. CELEXA [Concomitant]
     Dosage: 40 MG, QD
     Route: 048
  4. GLIPIZIDE [Concomitant]
     Dosage: 5 MG, QD
     Route: 048
  5. NASONEX [Concomitant]
     Dosage: 50 MCG
     Route: 045
  6. ACETAMINOPHEN AND HYDROCODONE BITARTRATE [Concomitant]
     Indication: ABDOMINAL PAIN UPPER
     Dosage: 5 MG/325 MG Q 6 HR.
  7. MARINOL [Concomitant]
     Dosage: 2.5 MG, BID
     Route: 048
  8. ALDACTONE [Concomitant]
     Indication: PORTAL HYPERTENSION
     Dosage: 25 MG, QID
     Route: 048
  9. ALBUTEROL SULFATE [Concomitant]
     Indication: CHRONIC OBSTRUCTIVE PULMONARY DISEASE
     Dosage: 90 MCG
     Route: 055
  10. BENTYL [Concomitant]
     Indication: FLATULENCE
     Dosage: 10 MG, QID
     Route: 048
  11. LOMOTIL [Concomitant]
     Dosage: 2.5 -.025 MG QID PRN
     Route: 048
  12. METOPROLOL SUCCINATE [Concomitant]
     Dosage: 25 MG, QD
     Route: 048
  13. PROBIOTICS [Concomitant]
     Indication: PROPHYLAXIS
  14. LACTULOSE [Concomitant]
     Indication: CONSTIPATION
     Dosage: 10G/15ML
     Route: 048
  15. SIMVASTATIN [Concomitant]
     Dosage: 20 MG, QD
     Route: 048
  16. NEXAVAR [Suspect]
     Dosage: 400 MG, BID
     Route: 048
     Dates: start: 20110124, end: 20110208
  17. NORCO [Concomitant]
     Indication: ABDOMINAL PAIN UPPER
     Dosage: 10 MG/ 325 MG
     Route: 048
  18. NEXAVAR [Suspect]
     Indication: HEPATIC NEOPLASM MALIGNANT
     Dosage: 400 MG, QD
     Route: 048
     Dates: start: 20110112, end: 20110123
  19. NEXAVAR [Suspect]
     Dosage: 400 MG, BID
     Route: 048
     Dates: start: 20110223

REACTIONS (7)
  - DIARRHOEA [None]
  - DEEP VEIN THROMBOSIS [None]
  - OESOPHAGEAL VARICES HAEMORRHAGE [None]
  - CONSTIPATION [None]
  - FAECES DISCOLOURED [None]
  - BILE DUCT OBSTRUCTION [None]
  - THROMBOCYTOPENIA [None]
